FAERS Safety Report 9668249 (Version 2)
Quarter: 2014Q1

REPORT INFORMATION
  Report Type: Report from Study
  Country: JP (occurrence: JP)
  Receive Date: 20131104
  Receipt Date: 20140124
  Transmission Date: 20141002
  Serious: Yes (Hospitalization, Other)
  Sender: FDA-Public Use
  Company Number: JP-TAKEDA-2013TJP002390

PATIENT
  Age: 49 Year
  Sex: Male
  Weight: 65 kg

DRUGS (12)
  1. LANSOPRAZOLE [Suspect]
     Indication: PROPHYLAXIS AGAINST GASTROINTESTINAL ULCER
     Dosage: 15 MG, QD
     Route: 048
     Dates: start: 20120820
  2. BASEN OD [Concomitant]
     Dosage: 0.6 MG, 1 DAYS
     Route: 048
     Dates: start: 20120820
  3. BLOPRESS [Concomitant]
     Indication: HYPERTENSION
     Dosage: 2 MG, 1 DAYS
     Route: 048
     Dates: start: 20130326
  4. BAYASPIRIN [Concomitant]
     Indication: THROMBOSIS PROPHYLAXIS
     Dosage: 100 MG, 1 DAYS
     Route: 048
     Dates: start: 20120820
  5. FOLIAMIN [Concomitant]
     Dosage: 15 MG, 1 DAYS
     Route: 048
     Dates: start: 20120820
  6. AMARYL [Concomitant]
     Dosage: 1 MG, 1 DAYS
     Route: 048
     Dates: start: 20120820
  7. LASIX                              /00032601/ [Concomitant]
     Dosage: 20 MG,1 DAYS
     Route: 048
     Dates: start: 20120820
  8. PLAVIX [Concomitant]
     Indication: ANGINA PECTORIS
     Dosage: 75 MG, 1 DAYS
     Route: 048
     Dates: start: 20130326
  9. ALDACTONE-A [Concomitant]
     Indication: HYPERTENSION
     Dosage: 25 MG, 1 DAYS
     Route: 048
     Dates: start: 20130326
  10. FLUITRAN [Concomitant]
     Indication: HYPERTENSION
     Dosage: 2 MG, 1 DAYS
     Route: 048
     Dates: start: 20130326
  11. EPADEL-S [Concomitant]
     Indication: DYSLIPIDAEMIA
     Dosage: 1.8 G, 1 DAYS
     Route: 048
     Dates: start: 20130326
  12. WARFARIN [Concomitant]
     Indication: ANGINA PECTORIS
     Dosage: 2 MG, 1 DAYS
     Route: 048
     Dates: start: 20120827

REACTIONS (2)
  - Sudden hearing loss [Recovering/Resolving]
  - Thrombotic cerebral infarction [Recovering/Resolving]
